FAERS Safety Report 10839007 (Version 2)
Quarter: 2015Q1

REPORT INFORMATION
  Report Type: Spontaneous
  Country: JP (occurrence: JP)
  Receive Date: 20150220
  Receipt Date: 20150309
  Transmission Date: 20150721
  Serious: Yes (Hospitalization, Other)
  Sender: FDA-Public Use
  Company Number: JP-ROCHE-1541076

PATIENT
  Age: 75 Year
  Sex: Female
  Weight: 60 kg

DRUGS (3)
  1. BONVIVA [Suspect]
     Active Substance: IBANDRONATE SODIUM
     Indication: OSTEOPOROSIS
     Route: 042
     Dates: start: 20140408, end: 20150202
  2. EDIROL [Concomitant]
     Active Substance: ELDECALCITOL
     Indication: OSTEOPOROSIS
     Route: 048
     Dates: start: 20140331
  3. OPALMON [Concomitant]
     Active Substance: LIMAPROST
     Indication: LUMBAR SPINAL STENOSIS
     Route: 048
     Dates: start: 20140331

REACTIONS (4)
  - Rash [Recovered/Resolved]
  - Hypertension [Recovered/Resolved]
  - Arrhythmia [Recovered/Resolved]
  - Palpitations [Recovered/Resolved]

NARRATIVE: CASE EVENT DATE: 20150202
